FAERS Safety Report 4217250 (Version 2)
Quarter: 2016Q1

REPORT INFORMATION
  Report Type: Spontaneous
  Country: US (occurrence: US)
  Receive Date: 20040928
  Receipt Date: 20160113
  Transmission Date: 20160526
  Serious: Yes (Congenital Anomaly, Other)
  Sender: FDA-Public Use
  Company Number: US-BRISTOL-MYERS SQUIBB COMPANY-12710182

PATIENT
  Age: 0 Day

DRUGS (7)
  1. AMBIEN [Suspect]
     Active Substance: ZOLPIDEM TARTRATE
     Indication: PRODUCT USED FOR UNKNOWN INDICATION
     Dosage: 20 MG, QD
     Route: 064
  2. ABILIFY [Suspect]
     Active Substance: ARIPIPRAZOLE
     Indication: PRODUCT USED FOR UNKNOWN INDICATION
     Dosage: INCREASED TO 20 MG ON 10-DEC-2003 AND DISCONTINUED ON 29-DEC-2003.
     Route: 064
     Dates: end: 20031229
  3. EFFEXOR XR [Suspect]
     Active Substance: VENLAFAXINE HYDROCHLORIDE
     Indication: PRODUCT USED FOR UNKNOWN INDICATION
     Dosage: 450 MG, QD
     Route: 064
     Dates: end: 20031229
  4. KLONOPIN [Suspect]
     Active Substance: CLONAZEPAM
     Indication: PRODUCT USED FOR UNKNOWN INDICATION
     Dosage: .5 MG, QID
     Route: 064
     Dates: end: 20031229
  5. GABITRIL [Suspect]
     Active Substance: TIAGABINE HYDROCHLORIDE
     Indication: PRODUCT USED FOR UNKNOWN INDICATION
     Dosage: 4 MG DAILY IN THE MORNING AND 8 MG DAILY AT HS.
     Route: 064
     Dates: end: 20031229
  6. ATIVAN [Suspect]
     Active Substance: LORAZEPAM
     Indication: PRODUCT USED FOR UNKNOWN INDICATION
     Dosage: 0.5 MG, QID
     Route: 064
     Dates: start: 20031229
  7. REMERON [Suspect]
     Active Substance: MIRTAZAPINE
     Indication: PRODUCT USED FOR UNKNOWN INDICATION
     Dosage: INCREASED TO 60 MG DAILY AT HS ON 23-FEB-2004.
     Route: 064

REACTIONS (4)
  - Foetal exposure during pregnancy [Unknown]
  - Meningomyelocele [Unknown]
  - Congenital anomaly [Unknown]
  - Congenital ectopic bladder [Unknown]

NARRATIVE: CASE EVENT DATE: 20040716
